FAERS Safety Report 20405760 (Version 1)
Quarter: 2022Q1

REPORT INFORMATION
  Report Type: Spontaneous
  Country: US (occurrence: None)
  Receive Date: 20220130
  Receipt Date: 20220130
  Transmission Date: 20220423
  Serious: No
  Sender: FDA-Public Use
  Company Number: None

PATIENT
  Sex: Male
  Weight: 97.65 kg

DRUGS (2)
  1. NURTEC ODT [Suspect]
     Active Substance: RIMEGEPANT SULFATE
     Indication: Headache
     Dosage: OTHER QUANTITY : 1 TABLET(S);?OTHER FREQUENCY : EVERY 2 DAYS;?
     Route: 060
     Dates: start: 20220122, end: 20220130
  2. NURTEC ODT [Suspect]
     Active Substance: RIMEGEPANT SULFATE
     Indication: Seizure

REACTIONS (1)
  - Adverse drug reaction [None]
